FAERS Safety Report 6839799-3 (Version None)
Quarter: 2010Q3

REPORT INFORMATION
  Report Type: 
  Country: None (occurrence: None)
  Receive Date: 20100714
  Receipt Date: 20100702
  Transmission Date: 20110219
  Serious: Yes (Other)
  Sender: FDA-Public Use
  Company Number: US-BAYER-201027088NA

PATIENT
  Age: 19 Year
  Sex: Female

DRUGS (1)
  1. MIRENA [Suspect]
     Indication: CONTRACEPTION
     Dosage: FREQUENCY: CONTINUOUS
     Route: 015
     Dates: start: 20071211

REACTIONS (5)
  - DEVICE DISLOCATION [None]
  - ECTOPIC PREGNANCY [None]
  - MENSTRUATION IRREGULAR [None]
  - MUSCLE SPASMS [None]
  - PELVIC DISCOMFORT [None]
